FAERS Safety Report 7814052-X (Version None)
Quarter: 2011Q4

REPORT INFORMATION
  Report Type: 
  Country: None (occurrence: None)
  Receive Date: 20111014
  Receipt Date: 20111010
  Transmission Date: 20120403
  Serious: Yes (Hospitalization, Other)
  Sender: FDA-Public Use
  Company Number: US-ROXANE LABORATORIES, INC.-2011-RO-01444RO

PATIENT
  Age: 66 Year
  Sex: Male

DRUGS (7)
  1. NAPROXEN [Suspect]
     Indication: ARTHRALGIA
  2. ROSIGLITAZONE [Suspect]
  3. GLYBURIDE [Suspect]
  4. LISINOPRIL [Suspect]
  5. SIMVASTATIN [Suspect]
  6. TRIMETHOPRIM + SULFAMETHOXAZOLE [Suspect]
     Indication: URINARY TRACT INFECTION
  7. SITAGLIPTIN [Suspect]

REACTIONS (5)
  - ELECTROCARDIOGRAM ST SEGMENT ELEVATION [None]
  - BLOOD CREATININE INCREASED [None]
  - DEHYDRATION [None]
  - HYPERKALAEMIA [None]
  - BLOOD UREA INCREASED [None]
